APPROVED DRUG PRODUCT: BENZONATATE
Active Ingredient: BENZONATATE
Strength: 200MG
Dosage Form/Route: CAPSULE;ORAL
Application: A206948 | Product #002 | TE Code: AA
Applicant: PURACAP PHARMACEUTICAL LLC
Approved: Dec 19, 2018 | RLD: No | RS: Yes | Type: RX